FAERS Safety Report 8053276-6 (Version None)
Quarter: 2012Q1

REPORT INFORMATION
  Report Type: 
  Country: None (occurrence: None)
  Receive Date: 20120118
  Receipt Date: 20120112
  Transmission Date: 20120608
  Serious: Yes (Hospitalization)
  Sender: FDA-Public Use
  Company Number: US-ROCHE-1030959

PATIENT
  Sex: Female
  Weight: 91.708 kg

DRUGS (15)
  1. RANIBIZUMAB [Suspect]
     Dosage: AS PER NECESSARY
     Dates: start: 20111207
  2. METFORMIN HCL [Concomitant]
     Dates: start: 20091101
  3. RANIBIZUMAB [Suspect]
     Indication: MACULAR OEDEMA
     Dosage: AS PER NECESSARY
     Dates: start: 20101208
  4. RANIBIZUMAB [Suspect]
     Dosage: AS PER NECESSARY
     Dates: start: 20110831
  5. RANIBIZUMAB [Suspect]
     Dosage: AS PER NECESSARY
     Dates: start: 20111005
  6. CITALOPRAM [Concomitant]
     Dates: start: 20090101
  7. RANIBIZUMAB [Suspect]
     Indication: RETINAL VEIN OCCLUSION
     Dosage: AS PER NECESSARY
     Dates: start: 20101103
  8. AMLODIPINE [Concomitant]
     Dates: start: 20091001
  9. HYDROCHLOROTHIAZIDE [Concomitant]
     Dates: start: 20091201
  10. HYDROCODONE BITARTRATE [Concomitant]
     Dates: start: 20110501
  11. RANIBIZUMAB [Suspect]
     Dosage: AS PER NECESSARY
     Dates: start: 20110325
  12. RANIBIZUMAB [Suspect]
     Dosage: AS PER NECESSARY
     Dates: start: 20110601
  13. OMEPRAZOLE [Concomitant]
     Dates: start: 20100501
  14. CEPHALEXIN [Concomitant]
     Dates: start: 20110501
  15. SKELAXIN [Concomitant]
     Dates: start: 20111001

REACTIONS (1)
  - TRANSIENT ISCHAEMIC ATTACK [None]
